FAERS Safety Report 13976228 (Version 2)
Quarter: 2018Q3

REPORT INFORMATION
  Report Type: Spontaneous
  Country: US (occurrence: US)
  Receive Date: 20170914
  Receipt Date: 20180913
  Transmission Date: 20181010
  Serious: No
  Sender: FDA-Public Use
  Company Number: US-ASTELLAS-2017US019698

PATIENT
  Age: 57 Year
  Sex: Male

DRUGS (1)
  1. XTANDI [Suspect]
     Active Substance: ENZALUTAMIDE
     Indication: PROSTATE CANCER
     Route: 048
     Dates: start: 20160926

REACTIONS (5)
  - Impaired healing [Unknown]
  - Hypoacusis [Unknown]
  - Head discomfort [Unknown]
  - Hair growth abnormal [Unknown]
  - Skin lesion [Unknown]

NARRATIVE: CASE EVENT DATE: 20170301
